FAERS Safety Report 15646302 (Version 1)
Quarter: 2018Q4

REPORT INFORMATION
  Report Type: Spontaneous
  Country: US (occurrence: US)
  Receive Date: 20181122
  Receipt Date: 20181122
  Transmission Date: 20190205
  Serious: No
  Sender: FDA-Public Use
  Company Number: US-BIOGEN-2018BI00661737

PATIENT
  Age: 44 Year
  Sex: Female

DRUGS (1)
  1. TYSABRI [Suspect]
     Active Substance: NATALIZUMAB
     Indication: MULTIPLE SCLEROSIS
     Route: 065

REACTIONS (7)
  - Panic attack [Unknown]
  - Pain in extremity [Unknown]
  - Malaise [Unknown]
  - Arthralgia [Unknown]
  - Anaemia [Unknown]
  - Muscle spasms [Unknown]
  - Migraine [Unknown]
